FAERS Safety Report 10462438 (Version 1)
Quarter: 2014Q3

REPORT INFORMATION
  Report Type: Spontaneous
  Country: JP (occurrence: JP)
  Receive Date: 20140918
  Receipt Date: 20140918
  Transmission Date: 20150326
  Serious: Yes (Other)
  Sender: FDA-Public Use
  Company Number: JP-JNJFOC-20140912539

PATIENT

DRUGS (3)
  1. COPEGUS [Concomitant]
     Active Substance: RIBAVIRIN
     Route: 048
  2. SOVRIAD [Suspect]
     Active Substance: SIMEPREVIR
     Indication: PRODUCT USED FOR UNKNOWN INDICATION
     Route: 048
  3. PEGASYS [Concomitant]
     Active Substance: PEGINTERFERON ALFA-2A
     Route: 058

REACTIONS (1)
  - Loss of consciousness [Unknown]
